FAERS Safety Report 8073875-5 (Version None)
Quarter: 2011Q4

REPORT INFORMATION
  Report Type: 
  Country: None (occurrence: None)
  Receive Date: 20111221
  Receipt Date: 20110322
  Transmission Date: 20120403
  Serious: Yes (Other)
  Sender: FDA-Public Use
  Company Number: PHHY2011US18558

PATIENT
  Age: 76 Year
  Sex: Female

DRUGS (19)
  1. EXJADE [Suspect]
     Indication: MYELODYSPLASTIC SYNDROME
     Dosage: 1500 MG, QD, ORAL
     Route: 048
     Dates: start: 20110228, end: 20110307
  2. MULTIVITAMIN [Concomitant]
  3. NORVASC [Concomitant]
  4. HERBAL NERVE TONIC LIQUID [Concomitant]
  5. ASPIRIN [Concomitant]
  6. ASPIRIN [Concomitant]
  7. CALCIUM CARBONATE [Concomitant]
  8. PREMARIN [Concomitant]
  9. DIPHENHYDRAMINE HCL [Concomitant]
  10. NORVASC [Concomitant]
  11. CALTRATE (CALCIUM CARBONATE) [Concomitant]
  12. VITAMIN TAB [Concomitant]
  13. PREMARIN [Concomitant]
  14. VITAMIN D [Concomitant]
  15. L-LYSINE (LYSINE) [Concomitant]
  16. MEDROL [Concomitant]
  17. ASCORBIC ACID [Concomitant]
  18. TRAVATAN [Concomitant]
  19. LYSINE (LYSINE) [Concomitant]

REACTIONS (12)
  - RASH GENERALISED [None]
  - CHILLS [None]
  - COUGH [None]
  - RASH ERYTHEMATOUS [None]
  - RASH PRURITIC [None]
  - PAIN [None]
  - ERYTHEMA [None]
  - HEADACHE [None]
  - OCULAR DISCOMFORT [None]
  - MALAISE [None]
  - ARTHRALGIA [None]
  - SERUM FERRITIN INCREASED [None]
